FAERS Safety Report 13938358 (Version 2)
Quarter: 2017Q4

REPORT INFORMATION
  Report Type: Report from Study
  Country: IT (occurrence: IT)
  Receive Date: 20170905
  Receipt Date: 20171011
  Transmission Date: 20180320
  Serious: Yes (Other)
  Sender: FDA-Public Use
  Company Number: IT-TEVA-801770ACC

PATIENT
  Age: 68 Year
  Sex: Male
  Weight: 80 kg

DRUGS (7)
  1. LANSOPRAZOLE. [Concomitant]
     Active Substance: LANSOPRAZOLE
     Indication: PRODUCT USED FOR UNKNOWN INDICATION
     Route: 048
  2. FLUOROURACILE AHCL ACCORD HEALTHCARE LIMITED [Concomitant]
     Indication: COLON CANCER
     Route: 040
     Dates: start: 20170221, end: 20170308
  3. ZESTRIL ASTRAZENECA S.P.A. [Concomitant]
     Indication: HYPERTENSION
     Route: 048
  4. CALCIO LEVOFOLINATO TEVA ITALIA S.R.L. [Concomitant]
     Indication: COLON CANCER
     Route: 042
     Dates: start: 20170221, end: 20170308
  5. OXALIPLATINO TEVA - 5MG/ML CONCENTRATO PER SOLUZIONE PER INFUSIONE [Suspect]
     Active Substance: OXALIPLATIN
     Indication: COLON CANCER
     Route: 042
     Dates: start: 20170221, end: 20170308
  6. CARDICOR RECORDATI INDUSTRIA CHIMICAE FARMACEUTICA S.P.A. [Concomitant]
     Indication: HYPERTENSION
     Route: 048
  7. FLUOROURACILE AHCL ACCORD HEALTHCARE LIMITED [Concomitant]
     Indication: COLON CANCER
     Route: 042
     Dates: start: 20170221, end: 20170308

REACTIONS (5)
  - Rash [Recovering/Resolving]
  - Hyperhidrosis [Recovering/Resolving]
  - Throat tightness [Recovering/Resolving]
  - Malaise [Recovering/Resolving]
  - Retching [Recovering/Resolving]

NARRATIVE: CASE EVENT DATE: 20170308
